FAERS Safety Report 7941342-2 (Version None)
Quarter: 2011Q4

REPORT INFORMATION
  Report Type: 
  Country: None (occurrence: None)
  Receive Date: 20111122
  Receipt Date: 20111109
  Transmission Date: 20120403
  Serious: Yes (Hospitalization)
  Sender: FDA-Public Use
  Company Number: CIP11003034

PATIENT
  Age: 87 Year
  Sex: Female

DRUGS (2)
  1. ACTONEL [Suspect]
     Indication: OSTEOPOROSIS
     Dosage: 2.5 MG DAILY, ORAL
     Route: 048
     Dates: start: 20040101, end: 20100601
  2. ERGOCALCIFEROL [Concomitant]

REACTIONS (5)
  - FEMUR FRACTURE [None]
  - FRACTURE NONUNION [None]
  - BONE FORMATION DECREASED [None]
  - STRESS FRACTURE [None]
  - PAIN IN EXTREMITY [None]
